FAERS Safety Report 20392371 (Version 1)
Quarter: 2022Q1

REPORT INFORMATION
  Report Type: Spontaneous
  Country: US (occurrence: None)
  Receive Date: 20220128
  Receipt Date: 20220128
  Transmission Date: 20220424
  Serious: Yes (Death)
  Sender: FDA-Public Use
  Company Number: None

PATIENT
  Age: 83 Year
  Sex: Male

DRUGS (9)
  1. REPATHA [Suspect]
     Active Substance: EVOLOCUMAB
     Indication: Chronic lymphocytic leukaemia
     Dosage: FREQUENCY : EVERY OTHER WEEK;?
     Route: 058
     Dates: start: 20200213, end: 20211220
  2. ASPIRIN [Concomitant]
     Active Substance: ASPIRIN
  3. BRILINTA [Concomitant]
     Active Substance: TICAGRELOR
  4. COENZYME Q10 [Concomitant]
     Active Substance: DIETARY SUPPLEMENT\UBIDECARENONE
  5. LASIX [Concomitant]
     Active Substance: FUROSEMIDE
  6. MULTI-VIT/MINERALS [Concomitant]
  7. TASIGNA [Concomitant]
     Active Substance: NILOTINIB
  8. TOPROL XL [Concomitant]
     Active Substance: METOPROLOL SUCCINATE
  9. HYDROCHLOROTHIAZIDE\TRIAMTERENE [Concomitant]
     Active Substance: HYDROCHLOROTHIAZIDE\TRIAMTERENE

REACTIONS (1)
  - Death [None]

NARRATIVE: CASE EVENT DATE: 20211220
